FAERS Safety Report 8131891-9 (Version None)
Quarter: 2012Q1

REPORT INFORMATION
  Report Type: 
  Country: None (occurrence: None)
  Receive Date: 20120208
  Receipt Date: 20120127
  Transmission Date: 20120608
  Serious: Yes (Hospitalization)
  Sender: FDA-Public Use
  Company Number: KAD201201-000023

PATIENT
  Sex: Male
  Weight: 133 kg

DRUGS (14)
  1. RIBAVIRIN [Suspect]
     Indication: HEPATITIS C
     Dosage: 400 MG TWO TIMES A DAY
     Dates: start: 20111129
  2. ALBUTEROL [Concomitant]
  3. FLUTICASONE INHALER [Concomitant]
  4. RANITIDINE [Concomitant]
  5. GABAPENTIN [Concomitant]
  6. CITALOPRAM HYDROBROMIDE [Concomitant]
  7. HYDRALAZINE HCL [Concomitant]
  8. METOPROLOL TARTRATE [Concomitant]
  9. GEODON [Concomitant]
  10. NYQUIL [Concomitant]
  11. ASPIRIN [Concomitant]
  12. AZITHROMYCIN [Concomitant]
  13. PEGASYS [Suspect]
     Indication: HEPATITIS C
     Dosage: 180 MCG WEEKLY
  14. FAMOTIDINE [Concomitant]

REACTIONS (3)
  - TREATMENT NONCOMPLIANCE [None]
  - CHRONIC OBSTRUCTIVE PULMONARY DISEASE [None]
  - PNEUMONIA [None]
